FAERS Safety Report 16730046 (Version 1)
Quarter: 2019Q4

REPORT INFORMATION
  Report Type: Spontaneous
  Country: US (occurrence: US)
  Receive Date: 20190821
  Receipt Date: 20190821
  Transmission Date: 20200122
  Serious: Yes (Hospitalization)
  Sender: FDA-Public Use
  Company Number: None

PATIENT
  Age: 66 Year
  Sex: Male

DRUGS (9)
  1. FLUDROCORTISONE [Concomitant]
     Active Substance: FLUDROCORTISONE
     Dates: start: 20190618
  2. LEVOTHYROXINE. [Concomitant]
     Active Substance: LEVOTHYROXINE
     Dates: start: 20190630
  3. WARFARIN [Concomitant]
     Active Substance: WARFARIN
     Dates: start: 20190601
  4. MYCOPHENOLATE [Suspect]
     Active Substance: MYCOPHENOLIC ACID
     Indication: ORGAN TRANSPLANT
     Route: 048
     Dates: start: 20170130
  5. PANTOPRAZOLE [Concomitant]
     Active Substance: PANTOPRAZOLE
     Dates: start: 20190416
  6. TACROLIMUS. [Suspect]
     Active Substance: TACROLIMUS
     Indication: ORGAN TRANSPLANT
     Route: 048
     Dates: start: 20170130
  7. CALCITRIOL. [Concomitant]
     Active Substance: CALCITRIOL
     Dates: start: 20190624
  8. SODIUM BICARBONATE. [Concomitant]
     Active Substance: SODIUM BICARBONATE
     Dates: start: 20190503
  9. PREDNISONE. [Concomitant]
     Active Substance: PREDNISONE
     Dates: start: 20190411

REACTIONS (1)
  - Hospitalisation [None]
